FAERS Safety Report 5534576-8 (Version None)
Quarter: 2007Q4

REPORT INFORMATION
  Report Type: 
  Country: None (occurrence: None)
  Receive Date: 20071205
  Receipt Date: 20071128
  Transmission Date: 20080405
  Serious: Yes (Hospitalization)
  Sender: FDA-Public Use
  Company Number: US-ELI_LILLY_AND_COMPANY-US200711003116

PATIENT
  Age: 39 Year
  Sex: Female
  Weight: 136.5 kg

DRUGS (8)
  1. CYMBALTA [Suspect]
     Indication: DEPRESSION
     Dosage: 30 MG, DAILY (1/D)
     Dates: start: 20070604
  2. CYMBALTA [Suspect]
     Dosage: 60 MG, DAILY (1/D)
     Dates: end: 20070926
  3. WELLBUTRIN [Concomitant]
     Dosage: 100 MG, DAILY (1/D)
     Dates: start: 20070101
  4. RESTORIL [Concomitant]
     Dosage: 15 MG, UNK
  5. RISPERDAL [Concomitant]
     Dosage: 0.5 MG, UNK
  6. VISTARIL [Concomitant]
     Dosage: 25 MG, UNK
  7. WELLBUTRIN SR [Concomitant]
     Dosage: 150 MG, UNK
     Dates: start: 20070101
  8. PROZAC [Concomitant]
     Dosage: 40 MG, DAILY (1/D)
     Dates: end: 20070604

REACTIONS (4)
  - CEREBROVASCULAR ACCIDENT [None]
  - HALLUCINATION, VISUAL [None]
  - MIGRAINE [None]
  - VISUAL DISTURBANCE [None]
